FAERS Safety Report 12382231 (Version 1)
Quarter: 2016Q2

REPORT INFORMATION
  Report Type: Spontaneous
  Country: FR (occurrence: FR)
  Receive Date: 20160518
  Receipt Date: 20160518
  Transmission Date: 20160815
  Serious: Yes (Other)
  Sender: FDA-Public Use
  Company Number: FR-CONCORDIA PHARMACEUTICALS INC.-CO-UX-FR-2016-022

PATIENT
  Age: 78 Year
  Sex: Male

DRUGS (9)
  1. AMLOR [Suspect]
     Active Substance: AMLODIPINE BESYLATE
     Indication: HYPERTENSION
     Route: 048
     Dates: start: 20160215
  2. FLUDEX [Suspect]
     Active Substance: INDAPAMIDE
     Indication: PRODUCT USED FOR UNKNOWN INDICATION
     Route: 048
     Dates: start: 20160219, end: 20160311
  3. LEXOMIL [Concomitant]
     Active Substance: BROMAZEPAM
  4. PARACETAMOL [Concomitant]
     Active Substance: ACETAMINOPHEN
  5. ALDACTAZINE [Concomitant]
     Active Substance: ALTHIAZIDE\SPIRONOLACTONE
  6. CEFOTAXIME [Concomitant]
     Active Substance: CEFOTAXIME SODIUM
  7. FORLAX [Concomitant]
     Active Substance: POLYETHYLENE GLYCOL 4000
  8. OFLOCET [Concomitant]
     Active Substance: OFLOXACIN
     Dates: start: 20160216, end: 20160229
  9. ALFUZOSIN HYDROCHLORIDE. [Suspect]
     Active Substance: ALFUZOSIN HYDROCHLORIDE
     Indication: PROSTATIC ADENOMA
     Route: 048
     Dates: start: 20160213

REACTIONS (3)
  - Thrombocytopenia [Not Recovered/Not Resolved]
  - Neutropenia [Not Recovered/Not Resolved]
  - Leukopenia [Not Recovered/Not Resolved]

NARRATIVE: CASE EVENT DATE: 20160311
